FAERS Safety Report 5241498-9 (Version None)
Quarter: 2007Q1

REPORT INFORMATION
  Report Type: 
  Country: None (occurrence: None)
  Receive Date: 20070220
  Receipt Date: 20070209
  Transmission Date: 20070707
  Serious: Yes (Life-Threatening, Hospitalization, Congenital Anomaly)
  Sender: FDA-Public Use
  Company Number: GB-GLAXOSMITHKLINE-B0454969A

PATIENT
  Age: 7 Month
  Sex: Female
  Weight: 5 kg

DRUGS (2)
  1. COMBIVIR [Suspect]
  2. VIRAMUNE [Suspect]
     Indication: RETROVIRAL INFECTION
     Dates: start: 20050922, end: 20060509

REACTIONS (7)
  - DEPRESSED LEVEL OF CONSCIOUSNESS [None]
  - DRUG EXPOSURE DURING PREGNANCY [None]
  - METABOLIC ACIDOSIS [None]
  - METHYLMALONIC ACIDURIA [None]
  - RHINITIS [None]
  - UNDERWEIGHT [None]
  - VITAMIN B12 DEFICIENCY [None]
